FAERS Safety Report 21341469 (Version 1)
Quarter: 2022Q3

REPORT INFORMATION
  Report Type: Spontaneous
  Country: US (occurrence: None)
  Receive Date: 20220915
  Receipt Date: 20220915
  Transmission Date: 20221026
  Serious: Yes (Hospitalization)
  Sender: FDA-Public Use
  Company Number: None

PATIENT
  Age: 66 Year
  Sex: Female
  Weight: 85.68 kg

DRUGS (15)
  1. IBRANCE [Suspect]
     Active Substance: PALBOCICLIB
     Dosage: OTHER FREQUENCY : 21D ON 7D OFF;?
     Route: 048
  2. FULVESTRANT [Suspect]
     Active Substance: FULVESTRANT
     Indication: Breast cancer female
     Dosage: FREQUENCY : MONTHLY;?
     Route: 048
     Dates: start: 201902, end: 202208
  3. AMOXICILLIN-PT CLAVULANATE [Concomitant]
  4. ANASTROZOLE [Concomitant]
     Active Substance: ANASTROZOLE
  5. CALCIUM 600+D [Concomitant]
  6. CEPHALEXIN [Concomitant]
     Active Substance: CEPHALEXIN
  7. CYCLOBENZAPRINE [Concomitant]
     Active Substance: CYCLOBENZAPRINE
  8. GABAPENTIN [Concomitant]
     Active Substance: GABAPENTIN
  9. HYZAAR [Concomitant]
     Active Substance: HYDROCHLOROTHIAZIDE\LOSARTAN POTASSIUM
  10. IBUPROFEN [Concomitant]
     Active Substance: IBUPROFEN
  11. MELATONIN [Concomitant]
     Active Substance: MELATONIN
  12. SILVER SULFADIAZINE [Concomitant]
     Active Substance: SILVER SULFADIAZINE
  13. SINGULAIR [Concomitant]
     Active Substance: MONTELUKAST SODIUM
  14. TYLENOL [Concomitant]
     Active Substance: ACETAMINOPHEN
  15. VITAMIN D2 [Suspect]
     Active Substance: ERGOCALCIFEROL

REACTIONS (2)
  - White blood cell count decreased [None]
  - Therapy interrupted [None]
